FAERS Safety Report 12498789 (Version 1)
Quarter: 2016Q2

REPORT INFORMATION
  Report Type: Spontaneous
  Country: US (occurrence: US)
  Receive Date: 20160627
  Receipt Date: 20160627
  Transmission Date: 20160815
  Serious: No
  Sender: FDA-Public Use
  Company Number: US-TAKEDA-2016TUS010459

PATIENT
  Age: 74 Year
  Sex: Male
  Weight: 106.58 kg

DRUGS (5)
  1. ULORIC [Suspect]
     Active Substance: FEBUXOSTAT
     Indication: HYPERURICAEMIA
     Dosage: 40 MG, QD
     Route: 048
     Dates: start: 2010, end: 201602
  2. LISINOPRIL. [Concomitant]
     Active Substance: LISINOPRIL
     Indication: HYPERTENSION
     Dosage: 20 MG, QD
     Route: 048
     Dates: start: 2010
  3. ULORIC [Suspect]
     Active Substance: FEBUXOSTAT
     Dosage: UNK UNK, QD
     Route: 048
     Dates: start: 201602, end: 201605
  4. ULORIC [Suspect]
     Active Substance: FEBUXOSTAT
     Dosage: UNK UNK, QD
     Route: 048
     Dates: start: 201605
  5. PROBENECID AND COLCHICINE [Concomitant]
     Active Substance: COLCHICINE\PROBENECID
     Dosage: UNK

REACTIONS (2)
  - Micturition urgency [Not Recovered/Not Resolved]
  - Wrong technique in product usage process [Not Recovered/Not Resolved]

NARRATIVE: CASE EVENT DATE: 201602
